FAERS Safety Report 5826499-1 (Version None)
Quarter: 2008Q3

REPORT INFORMATION
  Report Type: 
  Country: None (occurrence: None)
  Receive Date: 20080724
  Receipt Date: 20080719
  Transmission Date: 20090109
  Serious: Yes (Other)
  Sender: FDA-Public Use
  Company Number: 2007SP019309

PATIENT
  Age: 48 Year
  Sex: Male

DRUGS (17)
  1. PEG-INTRON [Suspect]
     Indication: HEPATITIS C
     Dosage: ; SC
     Route: 058
     Dates: start: 20070810
  2. REBETOL [Suspect]
     Indication: HEPATITIS C
     Dosage: ; PO
     Route: 048
     Dates: start: 20070810
  3. FLONASE [Suspect]
     Indication: DRUG USE FOR UNKNOWN INDICATION
     Dosage: 50 MCG; ; NAS
     Route: 045
  4. AMBIEN [Concomitant]
  5. AVAPRO [Concomitant]
  6. FLEXERIL [Concomitant]
  7. HYDROCHLOROTHIAZIDE [Concomitant]
  8. SINGULAIR [Concomitant]
  9. TOBRADEX [Concomitant]
  10. VICODIN [Concomitant]
  11. VISTARIL [Concomitant]
  12. ZOLOFT [Concomitant]
  13. ZYRTEC [Concomitant]
  14. NEURONTIN [Concomitant]
  15. ASCORBIC ACID [Concomitant]
  16. VISTARIL [Concomitant]
  17. VITAMIN E [Concomitant]

REACTIONS (21)
  - ANGER [None]
  - BLOOD THYROID STIMULATING HORMONE INCREASED [None]
  - CONFUSIONAL STATE [None]
  - CRYING [None]
  - DRY MOUTH [None]
  - DYSPHAGIA [None]
  - DYSPNOEA [None]
  - FATIGUE [None]
  - HEPATIC CIRRHOSIS [None]
  - HYPERTENSION [None]
  - INAPPROPRIATE AFFECT [None]
  - MUSCLE SPASMS [None]
  - NAUSEA [None]
  - OESOPHAGEAL CANDIDIASIS [None]
  - PYREXIA [None]
  - STRESS [None]
  - SUICIDAL IDEATION [None]
  - TOOTH ABSCESS [None]
  - TOOTH FRACTURE [None]
  - TOOTH LOSS [None]
  - TOOTHACHE [None]
